FAERS Safety Report 15160879 (Version 1)
Quarter: 2018Q3

REPORT INFORMATION
  Report Type: Spontaneous
  Country: TR (occurrence: TR)
  Receive Date: 20180718
  Receipt Date: 20180718
  Transmission Date: 20181010
  Serious: Yes (Congenital Anomaly)
  Sender: FDA-Public Use
  Company Number: PHHY2018TR042418

PATIENT
  Sex: Female

DRUGS (4)
  1. BETAHISTINE [Suspect]
     Active Substance: BETAHISTINE
     Indication: FOETAL EXPOSURE DURING PREGNANCY
     Dosage: MATEERNAL DOSE: 24 MG/DAY
     Route: 064
  2. FOLIC ACID. [Suspect]
     Active Substance: FOLIC ACID
     Indication: FOETAL EXPOSURE DURING PREGNANCY
     Dosage: UNK
     Route: 064
  3. VITAMIN B [Suspect]
     Active Substance: VITAMIN B
     Indication: FOETAL EXPOSURE DURING PREGNANCY
     Route: 064
  4. IBUPROFEN. [Suspect]
     Active Substance: IBUPROFEN
     Indication: FOETAL EXPOSURE DURING PREGNANCY
     Route: 064

REACTIONS (3)
  - Foetal exposure during pregnancy [Unknown]
  - Atrial septal defect [Recovered/Resolved]
  - Jaundice [Unknown]
